FAERS Safety Report 5270399-5 (Version None)
Quarter: 2007Q1

REPORT INFORMATION
  Report Type: 
  Country: None (occurrence: None)
  Receive Date: 20070320
  Receipt Date: 20070312
  Transmission Date: 20070707
  Serious: Yes (Life-Threatening)
  Sender: FDA-Public Use
  Company Number: FR-PFIZER INC-2007018623

PATIENT
  Age: 76 Year
  Sex: Male

DRUGS (2)
  1. QUINAPRIL HCL [Suspect]
     Dosage: TEXT:1 DF-FREQ:INTERVAL: EVERY DAY
     Route: 048
  2. ESTRAMUSTINE PHOSPHATE [Interacting]
     Route: 048
     Dates: start: 20051115, end: 20070125

REACTIONS (2)
  - ANGIOEDEMA [None]
  - DRUG INTERACTION [None]
